FAERS Safety Report 6282824-1 (Version None)
Quarter: 2009Q3

REPORT INFORMATION
  Report Type: 
  Country: None (occurrence: None)
  Receive Date: 20090722
  Receipt Date: 20090722
  Transmission Date: 20100115
  Serious: Yes (Other)
  Sender: FDA-Public Use
  Company Number: None

PATIENT
  Sex: Female
  Weight: 88.905 kg

DRUGS (2)
  1. RIBAVIRIN [Suspect]
     Indication: HEPATITIS C
     Dosage: 200 MG TAKE 3 CAPS BID PO
     Route: 048
     Dates: start: 20090623, end: 20090723
  2. PEGASYS [Suspect]
     Indication: HEPATITIS C
     Dosage: 180 MCG 180 MCG/0.5ML SQ
     Route: 058
     Dates: start: 20090623, end: 20090723

REACTIONS (5)
  - FATIGUE [None]
  - HYPERHIDROSIS [None]
  - NEUROPATHY PERIPHERAL [None]
  - PAIN IN EXTREMITY [None]
  - VOMITING [None]
